FAERS Safety Report 6967947-3 (Version None)
Quarter: 2010Q3

REPORT INFORMATION
  Report Type: 
  Country: None (occurrence: None)
  Receive Date: 20100907
  Receipt Date: 20100903
  Transmission Date: 20110219
  Serious: No
  Sender: FDA-Public Use
  Company Number: US-B.I. PHARMACEUTICALS,INC./RIDGEFIELD-2010-BP-10011BP

PATIENT
  Age: 66 Year
  Sex: Male

DRUGS (2)
  1. MICARDIS HCT [Suspect]
     Indication: HYPERTENSION
     Route: 048
     Dates: start: 20100801
  2. DIAZEPAM [Concomitant]
     Indication: MUSCLE SPASMS
     Dosage: 10 MG

REACTIONS (1)
  - BLOOD PRESSURE DIASTOLIC ABNORMAL [None]
